FAERS Safety Report 8814549 (Version 1)
Quarter: 2012Q4

REPORT INFORMATION
  Report Type: 
  Country: US (occurrence: US)
  Receive Date: 20120928
  Receipt Date: 20120928
  Transmission Date: 20130627
  Serious: Yes (Other)
  Sender: FDA-Public Use
  Company Number: US-JNJFOC-20120908653

PATIENT
  Age: 66 None
  Sex: Male
  Weight: 200.94 kg

DRUGS (6)
  1. SANDOZ FENTANYL TRANSDERMAL SYSTEM [Suspect]
     Indication: ARTHRALGIA
     Dosage: NDC 0781-7241-55
     Route: 062
     Dates: start: 20120906
  2. SANDOZ FENTANYL TRANSDERMAL SYSTEM [Suspect]
     Indication: ARTHRALGIA
     Route: 062
     Dates: start: 2011, end: 2011
  3. HYDROCODONE [Suspect]
     Indication: ARTHRALGIA
     Dosage: 10/650 mg every 4-5 hours
     Route: 048
     Dates: start: 2000, end: 2011
  4. UNSPECIFIED BLOOD PRESSURE MEDS [Concomitant]
     Indication: BLOOD PRESSURE
     Route: 048
  5. UNSPECIFIED CHOLESTEROL MEDICATION [Concomitant]
     Indication: BLOOD CHOLESTEROL
     Route: 065
  6. DIABETES MEDICATION [Concomitant]
     Indication: TYPE 2 DIABETES MELLITUS
     Route: 065

REACTIONS (5)
  - Hallucination [Recovered/Resolved]
  - Application site infection [Not Recovered/Not Resolved]
  - Inadequate analgesia [Not Recovered/Not Resolved]
  - Product quality issue [Unknown]
  - Inappropriate schedule of drug administration [Unknown]
